FAERS Safety Report 25659177 (Version 1)
Quarter: 2025Q3

REPORT INFORMATION
  Report Type: Spontaneous
  Country: US (occurrence: US)
  Receive Date: 20250808
  Receipt Date: 20250808
  Transmission Date: 20251021
  Serious: Yes (Life-Threatening, Hospitalization, Other)
  Sender: ACCORD
  Company Number: US-Accord-498337

PATIENT
  Age: 49 Year
  Sex: Female

DRUGS (3)
  1. HYDROXYCHLOROQUINE [Suspect]
     Active Substance: HYDROXYCHLOROQUINE
     Indication: Neuropsychiatric lupus
     Route: 048
  2. RITUXIMAB [Concomitant]
     Active Substance: RITUXIMAB
  3. PREDNISONE [Concomitant]
     Active Substance: PREDNISONE

REACTIONS (15)
  - Hypotension [Recovered/Resolved]
  - Electrocardiogram QRS complex prolonged [Recovered/Resolved]
  - Torsade de pointes [Recovered/Resolved]
  - Hypokalaemia [Unknown]
  - Hypomagnesaemia [Unknown]
  - Acute kidney injury [Unknown]
  - Ventricular tachycardia [Recovered/Resolved]
  - Depressed level of consciousness [Recovering/Resolving]
  - Cardiac arrest [Recovering/Resolving]
  - Pulmonary oedema [Recovering/Resolving]
  - Suicide attempt [Unknown]
  - Intentional overdose [Unknown]
  - Electrocardiogram QT prolonged [Recovered/Resolved]
  - Respiratory distress [Recovering/Resolving]
  - Toxicity to various agents [Unknown]
